FAERS Safety Report 4521989-6 (Version None)
Quarter: 2004Q4

REPORT INFORMATION
  Report Type: 
  Country: None (occurrence: None)
  Receive Date: 20041206
  Receipt Date: 20041122
  Transmission Date: 20050328
  Serious: No
  Sender: FDA-Public Use
  Company Number: 2004UW24015

PATIENT
  Age: 76 Year
  Sex: Female
  Weight: 77.11 kg

DRUGS (5)
  1. CRESTOR [Suspect]
     Indication: BLOOD CHOLESTEROL
     Dosage: 10 MG PO
     Route: 048
     Dates: start: 20040101
  2. DIAZIDE [Concomitant]
  3. COREG [Concomitant]
  4. NORVASC [Concomitant]
  5. ASPIRIN [Concomitant]

REACTIONS (3)
  - BLINDNESS [None]
  - MUSCLE TIGHTNESS [None]
  - TRANSIENT ISCHAEMIC ATTACK [None]
